FAERS Safety Report 9034061 (Version 1)
Quarter: 2013Q1

REPORT INFORMATION
  Report Type: Spontaneous
  Country: US (occurrence: US)
  Receive Date: 20130128
  Receipt Date: 20130128
  Transmission Date: 20140127
  Serious: Yes (Other)
  Sender: FDA-Public Use
  Company Number: US-AMGEN-USASP2012062362

PATIENT
  Age: 40 Year
  Sex: Female

DRUGS (1)
  1. ENBREL [Suspect]
     Indication: PSORIASIS
     Dosage: UNK
     Dates: start: 20120429, end: 201207

REACTIONS (6)
  - Pulmonary mass [Not Recovered/Not Resolved]
  - Nephrolithiasis [Recovered/Resolved]
  - Pain [Not Recovered/Not Resolved]
  - Flank pain [Recovered/Resolved]
  - Back pain [Recovered/Resolved]
  - Psoriasis [Not Recovered/Not Resolved]
